FAERS Safety Report 4523499-9 (Version None)
Quarter: 2004Q4

REPORT INFORMATION
  Report Type: 
  Country: None (occurrence: None)
  Receive Date: 20041117
  Receipt Date: 20031222
  Transmission Date: 20050328
  Serious: Yes (Other)
  Sender: FDA-Public Use
  Company Number: NSADSS2003009100

PATIENT
  Age: 53 Year
  Sex: Female
  Weight: 60.3 kg

DRUGS (12)
  1. LEVAQUIN [Suspect]
     Indication: PNEUMONIA
     Dosage: 500 MG, INTRAVENOUS NOS
     Route: 042
     Dates: start: 20030220
  2. LEVAQUIN (TABLETS) LEVOFLOXACIN [Concomitant]
  3. VANCOMYCIN [Concomitant]
  4. NYSTATIN [Concomitant]
  5. ERYTHROMYCIN [Concomitant]
  6. METRONIDAZOLE [Concomitant]
  7. TRIMETHOPRIM/SULFA (TRIMETHOPRIM [Concomitant]
  8. LAMIVUDINE (LAMIVUDINE) [Concomitant]
  9. FLUCONAZOLE [Concomitant]
  10. ROBITUSSIN (GUAIFENESIN) [Concomitant]
  11. HALOPERIDOL (HIALOPERIDOL) [Concomitant]
  12. .. [Concomitant]

REACTIONS (1)
  - INJECTION SITE REACTION [None]
